FAERS Safety Report 8347639-9 (Version None)
Quarter: 2012Q2

REPORT INFORMATION
  Report Type: 
  Country: None (occurrence: None)
  Receive Date: 20120509
  Receipt Date: 20120427
  Transmission Date: 20120825
  Serious: Yes (Hospitalization, Other)
  Sender: FDA-Public Use
  Company Number: JP-VERTEX PHARMACEUTICALS INC.-AE-2012-005408

PATIENT
  Age: 54 Year
  Sex: Male

DRUGS (60)
  1. LOXONIN [Concomitant]
     Route: 048
     Dates: start: 20120413, end: 20120422
  2. POSTERISAN [Concomitant]
     Route: 061
     Dates: start: 20120225, end: 20120225
  3. TALION OD [Concomitant]
     Route: 061
     Dates: start: 20120227, end: 20120412
  4. TALION OD [Concomitant]
     Route: 048
     Dates: start: 20120413, end: 20120422
  5. ATARAX [Concomitant]
     Route: 048
     Dates: start: 20120424, end: 20120425
  6. CELEBREX [Concomitant]
     Route: 048
     Dates: start: 20120407, end: 20120413
  7. PETROLATUM SALICYLATE [Concomitant]
     Route: 061
     Dates: start: 20120321, end: 20120321
  8. COTRIM [Concomitant]
     Route: 048
     Dates: start: 20120420, end: 20120425
  9. NERISONA [Concomitant]
     Route: 061
     Dates: start: 20120416, end: 20120416
  10. LENDORMIN [Concomitant]
     Route: 048
     Dates: start: 20120420, end: 20120422
  11. FULMETA [Concomitant]
     Route: 061
     Dates: start: 20120227, end: 20120227
  12. CELEBREX [Concomitant]
     Route: 048
     Dates: start: 20120313, end: 20120320
  13. CELEBREX [Concomitant]
     Route: 048
     Dates: start: 20120328, end: 20120330
  14. HIRUDOID [Concomitant]
     Route: 061
     Dates: start: 20120411, end: 20120411
  15. PETROLATUM SALICYLATE [Concomitant]
     Route: 061
     Dates: start: 20120328, end: 20120328
  16. POLYMYXIN B SULFATE [Concomitant]
     Route: 048
     Dates: start: 20120411, end: 20120415
  17. LEVOFLOXACIN [Concomitant]
     Route: 048
     Dates: start: 20120415, end: 20120417
  18. LANSOPRAZOLE [Concomitant]
     Route: 048
     Dates: start: 20120424, end: 20120425
  19. LOXONIN [Concomitant]
     Route: 048
     Dates: start: 20120303, end: 20120311
  20. FULMETA [Concomitant]
     Route: 061
     Dates: start: 20120301, end: 20120301
  21. FULMETA [Concomitant]
     Route: 061
     Dates: start: 20120321, end: 20120321
  22. CLEMASTINE FUMARATE [Concomitant]
     Route: 048
     Dates: start: 20120424, end: 20120425
  23. CELEBREX [Concomitant]
     Route: 048
     Dates: start: 20120321, end: 20120322
  24. FUNGIZONE [Concomitant]
     Route: 048
     Dates: start: 20120411, end: 20120411
  25. LANSOPRAZOLE [Concomitant]
     Route: 048
     Dates: start: 20120418, end: 20120418
  26. REBETOL [Concomitant]
     Route: 048
     Dates: start: 20120313, end: 20120410
  27. LOXONIN [Concomitant]
     Route: 048
     Dates: start: 20120302, end: 20120302
  28. FULMETA [Concomitant]
     Route: 061
     Dates: start: 20120413, end: 20120413
  29. ATARAX [Concomitant]
     Route: 048
     Dates: start: 20120313, end: 20120320
  30. HIRUDOID [Concomitant]
     Route: 061
     Dates: start: 20120321, end: 20120321
  31. LANSOPRAZOLE [Concomitant]
     Route: 048
     Dates: start: 20120419, end: 20120419
  32. WHITE PATROLATUM [Concomitant]
     Route: 061
     Dates: start: 20120424, end: 20120424
  33. FULMETA [Concomitant]
     Route: 061
     Dates: start: 20120313, end: 20120313
  34. FULMETA [Concomitant]
     Route: 061
     Dates: start: 20120328, end: 20120328
  35. FULMETA [Concomitant]
     Route: 061
     Dates: start: 20120411, end: 20120411
  36. CLEMASTINE FUMARATE [Concomitant]
     Route: 048
     Dates: start: 20120301, end: 20120412
  37. CELEBREX [Concomitant]
     Route: 048
     Dates: start: 20120323, end: 20120327
  38. HIRUDOID [Concomitant]
     Route: 061
     Dates: start: 20120328, end: 20120328
  39. HIRUDOID [Concomitant]
     Route: 051
     Dates: start: 20120416, end: 20120416
  40. ISODINE [Concomitant]
     Route: 049
     Dates: start: 20120411, end: 20120411
  41. VOLTAREN [Concomitant]
     Route: 054
     Dates: start: 20120221, end: 20120221
  42. CLEMASTINE FUMARATE [Concomitant]
     Route: 048
     Dates: start: 20120413, end: 20120422
  43. ALLOPURINOL [Concomitant]
     Route: 048
     Dates: start: 20120404, end: 20120410
  44. COTRIM [Concomitant]
     Route: 048
     Dates: start: 20120412, end: 20120415
  45. PREDNISOLONE [Concomitant]
     Route: 048
     Dates: start: 20120418, end: 20120425
  46. LANSOPRAZOLE [Concomitant]
     Route: 048
     Dates: start: 20120420, end: 20120421
  47. TELAVIC (TELAPREVIR) [Suspect]
     Indication: HEPATITIS C
     Route: 048
     Dates: start: 20120221, end: 20120410
  48. REBETOL [Concomitant]
     Indication: HEPATITIS C
     Route: 048
     Dates: start: 20120221, end: 20120312
  49. LOXONIN [Concomitant]
     Route: 048
     Dates: start: 20120222, end: 20120301
  50. LOXONIN [Concomitant]
     Route: 048
     Dates: start: 20120306, end: 20120315
  51. FULMETA [Concomitant]
     Route: 061
     Dates: start: 20120306, end: 20120306
  52. CELEBREX [Concomitant]
     Route: 048
     Dates: start: 20120331, end: 20120403
  53. CELEBREX [Concomitant]
     Route: 048
     Dates: start: 20120404, end: 20120406
  54. NERISONA [Concomitant]
     Route: 061
     Dates: start: 20120421, end: 20120421
  55. ZOLPIDEM [Concomitant]
     Route: 048
     Dates: start: 20120423, end: 20120424
  56. OLOPATADINE HCL [Concomitant]
     Route: 048
     Dates: start: 20120424, end: 20120425
  57. PEG-INTRON [Concomitant]
     Indication: HEPATITIS C
     Route: 058
     Dates: start: 20120221
  58. REBETOL [Concomitant]
     Route: 048
     Dates: start: 20120420
  59. ATARAX [Concomitant]
     Route: 048
     Dates: start: 20120321, end: 20120422
  60. CLOBETASOL PROPIONATE [Concomitant]
     Route: 061
     Dates: start: 20120424, end: 20120424

REACTIONS (3)
  - TOXIC SKIN ERUPTION [None]
  - AGRANULOCYTOSIS [None]
  - NEUTROPENIA [None]
